FAERS Safety Report 19698032 (Version 4)
Quarter: 2021Q4

REPORT INFORMATION
  Report Type: Report from Study
  Country: None (occurrence: US)
  Receive Date: 20210812
  Receipt Date: 20211025
  Transmission Date: 20220303
  Serious: Yes (Other)
  Sender: FDA-Public Use
  Company Number: US-ABBVIE-21K-163-3949477-00

PATIENT
  Age: 73 Year
  Sex: Male

DRUGS (2)
  1. HUMIRA [Suspect]
     Active Substance: ADALIMUMAB
     Indication: Psoriasis
     Dosage: CITRATE FREE
     Route: 058
     Dates: end: 20210522
  2. HUMIRA [Suspect]
     Active Substance: ADALIMUMAB
     Indication: Psoriatic arthropathy

REACTIONS (11)
  - Vascular stent occlusion [Unknown]
  - Brain hypoxia [Unknown]
  - Deep vein thrombosis [Unknown]
  - Knee arthroplasty [Unknown]
  - Myocardial infarction [Unknown]
  - Cerebral hypoperfusion [Unknown]
  - Skin cancer [Unknown]
  - Abdominal hernia [Unknown]
  - Orchitis noninfective [Unknown]
  - Orthostatic hypotension [Unknown]
  - Scoliosis [Unknown]

NARRATIVE: CASE EVENT DATE: 20210129
